FAERS Safety Report 15022741 (Version 2)
Quarter: 2018Q3

REPORT INFORMATION
  Report Type: Report from Study
  Country: DO (occurrence: DO)
  Receive Date: 20180618
  Receipt Date: 20180702
  Transmission Date: 20181010
  Serious: Yes (Other)
  Sender: FDA-Public Use
  Company Number: PHHY2017DO148675

PATIENT
  Sex: Female
  Weight: 54.42 kg

DRUGS (1)
  1. GILENYA [Suspect]
     Active Substance: FINGOLIMOD HYDROCHLORIDE
     Indication: MULTIPLE SCLEROSIS
     Dosage: 1 DF, QD
     Route: 065

REACTIONS (9)
  - Feeling abnormal [Unknown]
  - Palpitations [Unknown]
  - Papilloedema [Unknown]
  - Daydreaming [Unknown]
  - Anaemia [Unknown]
  - Urinary incontinence [Not Recovered/Not Resolved]
  - Visual impairment [Unknown]
  - Malaise [Unknown]
  - Muscle spasms [Not Recovered/Not Resolved]
